FAERS Safety Report 7425390-7 (Version None)
Quarter: 2011Q2

REPORT INFORMATION
  Report Type: 
  Country: None (occurrence: None)
  Receive Date: 20110420
  Receipt Date: 20110411
  Transmission Date: 20111010
  Serious: Yes (Hospitalization)
  Sender: FDA-Public Use
  Company Number: BE-ELI_LILLY_AND_COMPANY-BE201104003249

PATIENT
  Sex: Male

DRUGS (2)
  1. ZYPADHERA [Suspect]
     Indication: SCHIZOPHRENIA
     Dosage: 405 MG, MONTHLY (1/M)
     Route: 030
  2. DOCTRAZODONE [Concomitant]
     Indication: SLEEP DISORDER
     Dosage: UNK, EACH EVENING

REACTIONS (9)
  - AGITATION [None]
  - RESTLESSNESS [None]
  - FALL [None]
  - DYSARTHRIA [None]
  - HEART RATE INCREASED [None]
  - CONFUSIONAL STATE [None]
  - DIZZINESS [None]
  - ATAXIA [None]
  - SEDATION [None]
